FAERS Safety Report 5701335-2 (Version None)
Quarter: 2008Q2

REPORT INFORMATION
  Report Type: 
  Country: None (occurrence: None)
  Receive Date: 20080407
  Receipt Date: 20080310
  Transmission Date: 20081010
  Serious: Yes (Hospitalization)
  Sender: FDA-Public Use
  Company Number: 2007036816

PATIENT
  Age: 42 Year
  Sex: Female
  Weight: 63 kg

DRUGS (4)
  1. DACARBAZINE [Suspect]
     Indication: MALIGNANT MELANOMA
     Dosage: 1700 MG (1700 MG, DAILY- EVERY 22 DAYS), INTRAVENOUS
     Route: 042
     Dates: start: 20070323, end: 20070413
  2. BISOPROLOL (BISOPROLOL) [Concomitant]
  3. ALLOPURINOL [Concomitant]
  4. IMOVANE (ZOPICLONE) [Concomitant]

REACTIONS (3)
  - DISEASE PROGRESSION [None]
  - PNEUMONIA [None]
  - PULMONARY EMBOLISM [None]
